FAERS Safety Report 9969110 (Version 2)
Quarter: 2014Q1

REPORT INFORMATION
  Report Type: Spontaneous
  Country: IT (occurrence: IT)
  Receive Date: 20140306
  Receipt Date: 20140314
  Transmission Date: 20141002
  Serious: Yes (Hospitalization)
  Sender: FDA-Public Use
  Company Number: IT-RANBAXY-2014RR-78535

PATIENT
  Age: 48 Year
  Sex: Female

DRUGS (6)
  1. LORAZEPAM [Suspect]
     Indication: INTENTIONAL SELF-INJURY
     Dosage: 130 DOSAGE UNITS COMPLETE
     Route: 048
     Dates: start: 20140102, end: 20140102
  2. TACHIPIRINA [Suspect]
     Indication: INTENTIONAL SELF-INJURY
     Dosage: 30 DOSAGE UNITS COMPLETE
     Route: 048
     Dates: start: 20140102, end: 20140102
  3. SCOPOLAMINE BUTYLBROMIDE [Suspect]
     Indication: INTENTIONAL SELF-INJURY
     Dosage: 30 DOSAGE UNITS COMPLETE
     Route: 048
     Dates: start: 20140102, end: 20140102
  4. QUETIAPINE [Concomitant]
     Indication: DEPRESSION
     Dosage: UNK
     Route: 065
     Dates: start: 20131108
  5. SERTRALINE [Concomitant]
     Indication: DEPRESSION
     Dosage: UNK
     Route: 065
     Dates: start: 20131108
  6. MELATONIN [Concomitant]
     Indication: PRODUCT USED FOR UNKNOWN INDICATION
     Dosage: UNK
     Route: 065
     Dates: start: 20131108

REACTIONS (3)
  - Drug abuse [Recovered/Resolved]
  - Tachycardia [Recovered/Resolved]
  - Somnolence [Recovered/Resolved]
